FAERS Safety Report 6854936-2 (Version None)
Quarter: 2010Q3

REPORT INFORMATION
  Report Type: 
  Country: None (occurrence: None)
  Receive Date: 20100717
  Receipt Date: 20080306
  Transmission Date: 20110219
  Serious: No
  Sender: FDA-Public Use
  Company Number: US-PFIZER INC-2007103081

PATIENT
  Sex: Male
  Weight: 95.5 kg

DRUGS (6)
  1. CHANTIX [Suspect]
     Indication: SMOKING CESSATION THERAPY
     Route: 048
     Dates: start: 20071117, end: 20071125
  2. LIPITOR [Suspect]
     Indication: HYPERCHOLESTEROLAEMIA
     Dates: end: 20061117
  3. ZYRTEC [Concomitant]
  4. OMEGA-3 MARINE TRIGLYCERIDES [Concomitant]
  5. ACETYLSALICYLIC ACID [Concomitant]
  6. MULTI-VITAMINS [Concomitant]

REACTIONS (2)
  - MYALGIA [None]
  - URTICARIA [None]
